FAERS Safety Report 23721659 (Version 1)
Quarter: 2024Q2

REPORT INFORMATION
  Report Type: Report from Study
  Country: US (occurrence: None)
  Receive Date: 20240409
  Receipt Date: 20240409
  Transmission Date: 20240716
  Serious: Yes (Death, Other)
  Sender: FDA-Public Use
  Company Number: 2020SF70805

PATIENT
  Sex: Male

DRUGS (1)
  1. SYMBICORT [Suspect]
     Active Substance: BUDESONIDE\FORMOTEROL FUMARATE DIHYDRATE
     Dosage: 80/4.5 1 PUFF BID
     Route: 055
     Dates: start: 202004

REACTIONS (3)
  - Myocardial infarction [Unknown]
  - Cardiac procedure complication [Fatal]
  - Off label use [Unknown]
